FAERS Safety Report 16830837 (Version 1)
Quarter: 2019Q3

REPORT INFORMATION
  Report Type: Spontaneous
  Country: FR (occurrence: FR)
  Receive Date: 20190920
  Receipt Date: 20190920
  Transmission Date: 20191005
  Serious: Yes (Hospitalization)
  Sender: FDA-Public Use
  Company Number: FR-TEVA-2019-FR-1110356

PATIENT
  Age: 73 Year
  Sex: Female
  Weight: 97 kg

DRUGS (10)
  1. TELMISARTAN. [Concomitant]
     Active Substance: TELMISARTAN
  2. BUDESONIDE. [Concomitant]
     Active Substance: BUDESONIDE
  3. CLOPIDOGREL (CHLORHYDRATE DE) [Concomitant]
     Active Substance: CLOPIDOGREL HYDROCHLORIDE
  4. ROSUVASTATINE [Concomitant]
     Active Substance: ROSUVASTATIN
  5. FUROSEMIDE. [Concomitant]
     Active Substance: FUROSEMIDE
  6. METFORMINE [Suspect]
     Active Substance: METFORMIN HYDROCHLORIDE
     Indication: TYPE 2 DIABETES MELLITUS
     Dosage: 3000 MILLIGRAM PER DAY
     Route: 048
     Dates: start: 20190802, end: 20190809
  7. COLECALCIFEROL [Concomitant]
     Active Substance: CHOLECALCIFEROL
  8. DULAGLUTIDE ((MAMMIFERE/HAMSTER/CELLULES CHO)) [Concomitant]
  9. PARACETAMOL [Concomitant]
     Active Substance: ACETAMINOPHEN
  10. LERCANIDIPINE (CHLORHYDRATE DE) [Concomitant]
     Active Substance: LERCANIDIPINE HYDROCHLORIDE

REACTIONS (2)
  - Acute kidney injury [Recovering/Resolving]
  - Metabolic acidosis [Recovering/Resolving]

NARRATIVE: CASE EVENT DATE: 20190809
